FAERS Safety Report 9104130 (Version 1)
Quarter: 2013Q1

REPORT INFORMATION
  Report Type: Spontaneous
  Country: BR (occurrence: BR)
  Receive Date: 20130219
  Receipt Date: 20130219
  Transmission Date: 20140127
  Serious: Yes (Hospitalization)
  Sender: FDA-Public Use
  Company Number: BR-GENZYME-POMP-1002801

PATIENT
  Age: 8 Month
  Sex: Female

DRUGS (1)
  1. MYOZYME [Suspect]
     Dosage: UNK
     Route: 042
     Dates: start: 201212

REACTIONS (1)
  - Septic shock [Unknown]
